FAERS Safety Report 25570769 (Version 1)
Quarter: 2025Q3

REPORT INFORMATION
  Report Type: Spontaneous
  Country: CN (occurrence: CN)
  Receive Date: 20250717
  Receipt Date: 20250717
  Transmission Date: 20251020
  Serious: Yes (Other)
  Sender: ACCORD
  Company Number: CN-Accord-494525

PATIENT
  Age: 65 Year
  Sex: Male

DRUGS (5)
  1. GEMCITABINE [Suspect]
     Active Substance: GEMCITABINE
     Indication: Gallbladder cancer stage III
     Dosage: REPEATED EVERY THREE WEEKS FOR A TOTAL OF FOUR CYCLES
     Dates: start: 20191120, end: 20200222
  2. CAPECITABINE [Suspect]
     Active Substance: CAPECITABINE
     Indication: Gallbladder cancer stage III
     Dosage: REPEATED EVERY THREE WEEKS FOR A TOTAL OF FOUR CYCLES
     Route: 048
     Dates: start: 20191120, end: 20200222
  3. ASPIRIN [Concomitant]
     Active Substance: ASPIRIN
     Indication: Cerebral infarction
  4. CAPECITABINE [Suspect]
     Active Substance: CAPECITABINE
     Indication: Metastases to lymph nodes
     Dosage: REPEATED EVERY THREE WEEKS FOR A TOTAL OF FOUR CYCLES
     Route: 048
     Dates: start: 20191120, end: 20200222
  5. GEMCITABINE [Suspect]
     Active Substance: GEMCITABINE
     Indication: Metastases to lymph nodes
     Dosage: REPEATED EVERY THREE WEEKS FOR A TOTAL OF FOUR CYCLES
     Dates: start: 20191120, end: 20200222

REACTIONS (2)
  - Leukopenia [Recovered/Resolved]
  - Neutropenia [Recovered/Resolved]
